FAERS Safety Report 4875114-2 (Version None)
Quarter: 2006Q1

REPORT INFORMATION
  Report Type: 
  Country: None (occurrence: None)
  Receive Date: 20060109
  Receipt Date: 20060103
  Transmission Date: 20060701
  Serious: Yes (Hospitalization)
  Sender: FDA-Public Use
  Company Number: FR-GLAXOSMITHKLINE-B0405692A

PATIENT
  Age: 95 Year
  Sex: Male
  Weight: 52 kg

DRUGS (11)
  1. AUGMENTIN '125' [Suspect]
     Dosage: 1G TWICE PER DAY
     Route: 048
     Dates: start: 20051107
  2. CIFLOX [Suspect]
     Dosage: 1UNIT TWICE PER DAY
     Route: 048
     Dates: start: 20051107
  3. PREVISCAN [Suspect]
     Dosage: 10MG PER DAY
     Route: 048
     Dates: end: 20051114
  4. ZYLORIC [Concomitant]
     Dosage: 1UNIT PER DAY
     Route: 048
  5. TRIATEC [Concomitant]
     Dosage: 3.75MG PER DAY
     Route: 048
  6. NITRODERM [Concomitant]
     Dosage: 10MG PER DAY
     Route: 048
  7. VIT B12 [Concomitant]
     Route: 065
  8. LASILIX [Concomitant]
     Dosage: 20MG PER DAY
     Route: 048
  9. LAROXYL [Concomitant]
     Dosage: 15DROP PER DAY
     Route: 048
  10. KAYEXALATE [Concomitant]
     Dosage: 1UNIT TWICE PER DAY
     Route: 065
  11. COLCHIMAX [Concomitant]
     Dosage: 1UNIT PER DAY
     Route: 065

REACTIONS (3)
  - DRUG INTERACTION [None]
  - INTERNATIONAL NORMALISED RATIO INCREASED [None]
  - SUBDURAL HAEMATOMA [None]
